FAERS Safety Report 23408202 (Version 3)
Quarter: 2024Q1

REPORT INFORMATION
  Report Type: Spontaneous
  Country: US (occurrence: None)
  Receive Date: 20240117
  Receipt Date: 20240314
  Transmission Date: 20240410
  Serious: Yes (Hospitalization)
  Sender: FDA-Public Use
  Company Number: US-ROCHE-3491009

PATIENT
  Age: 9 Year
  Sex: Male
  Weight: 25 kg

DRUGS (15)
  1. EVRYSDI [Suspect]
     Active Substance: RISDIPLAM
     Indication: Spinal muscular atrophy
     Dosage: STRENGTH 0.75 MG/ML?DOSE 4.95 MG
     Dates: start: 20230929
  2. ALBUTEROL [Concomitant]
     Active Substance: ALBUTEROL
     Indication: Cough
     Route: 055
  3. ALBUTEROL SULFATE [Concomitant]
     Active Substance: ALBUTEROL SULFATE
     Dosage: 2 PUFF
     Route: 055
  4. SYMMETREL [Concomitant]
     Active Substance: AMANTADINE HYDROCHLORIDE
  5. ATROPINE [Concomitant]
     Active Substance: ATROPINE\ATROPINE SULFATE
     Route: 047
  6. VALIUM [Concomitant]
     Active Substance: DIAZEPAM
  7. FLONASE [Concomitant]
     Active Substance: FLUTICASONE PROPIONATE
     Dosage: SPRAY
     Route: 045
  8. GABAPENTIN [Concomitant]
     Active Substance: GABAPENTIN
  9. LACOSAMIDE [Concomitant]
     Active Substance: LACOSAMIDE
     Route: 048
  10. PREVACID [Concomitant]
     Active Substance: LANSOPRAZOLE
     Route: 048
  11. KEPPRA [Concomitant]
     Active Substance: LEVETIRACETAM
  12. MIDAZOLAM [Concomitant]
     Active Substance: MIDAZOLAM
     Indication: Seizure
     Route: 042
  13. DILANTIN [Concomitant]
     Active Substance: PHENYTOIN
  14. GLYCOLAX [Concomitant]
     Active Substance: POLYETHYLENE GLYCOL 3350
     Indication: Constipation
     Route: 048
  15. TRAZODONE [Concomitant]
     Active Substance: TRAZODONE HYDROCHLORIDE
     Route: 048

REACTIONS (3)
  - Gastrointestinal haemorrhage [Recovered/Resolved]
  - Gastritis [Unknown]
  - Haemoglobin decreased [Unknown]

NARRATIVE: CASE EVENT DATE: 20231230
